FAERS Safety Report 10192587 (Version 1)
Quarter: 2014Q2

REPORT INFORMATION
  Report Type: Spontaneous
  Country: FR (occurrence: FR)
  Receive Date: 20140523
  Receipt Date: 20140523
  Transmission Date: 20141212
  Serious: Yes (Hospitalization)
  Sender: FDA-Public Use
  Company Number: FR-PFIZER INC-2014138396

PATIENT
  Age: 58 Year
  Sex: Female

DRUGS (5)
  1. XANAX [Suspect]
     Dosage: UNK
     Route: 048
  2. SIMVASTATIN [Suspect]
     Dosage: UNK
     Route: 048
  3. PREDNISONE [Suspect]
     Dosage: UNK
     Route: 048
  4. LOXEN LP [Suspect]
     Dosage: 50 MG, UNK
     Route: 048
  5. PLAQUENIL [Suspect]
     Dosage: UNK
     Route: 048

REACTIONS (4)
  - Sinus bradycardia [Unknown]
  - Somnolence [Unknown]
  - Electrocardiogram QT prolonged [Unknown]
  - Toxicity to various agents [Unknown]
